FAERS Safety Report 13699953 (Version 2)
Quarter: 2017Q3

REPORT INFORMATION
  Report Type: Report from Study
  Country: MX (occurrence: MX)
  Receive Date: 20170629
  Receipt Date: 20170719
  Transmission Date: 20171127
  Serious: Yes (Hospitalization)
  Sender: FDA-Public Use
  Company Number: MX-UCBSA-2017024840

PATIENT
  Sex: Female
  Weight: 8.3 kg

DRUGS (4)
  1. LEVETIRACETAM. [Suspect]
     Active Substance: LEVETIRACETAM
     Indication: EPILEPSY
     Dosage: 0-9 ML, 2X/DAY (BID)
     Route: 048
     Dates: start: 201608, end: 201705
  2. ATEMPERATOR [Concomitant]
     Indication: EPILEPSY
     Dosage: 1.4 ML, 2X/DAY (BID)
     Dates: start: 201611
  3. LEVETIRACETAM. [Suspect]
     Active Substance: LEVETIRACETAM
     Dosage: 1.5 ML, 2X/DAY (BID)
     Route: 048
     Dates: start: 20170521
  4. NOOTROPIL [Suspect]
     Active Substance: PIRACETAM
     Indication: MICROCEPHALY
     Dosage: 1.5 ML, 2X/DAY (BID)
     Route: 048
     Dates: start: 201608

REACTIONS (2)
  - Poor feeding infant [Unknown]
  - Off label use [Unknown]

NARRATIVE: CASE EVENT DATE: 201608
